FAERS Safety Report 6996400-6 (Version None)
Quarter: 2010Q3

REPORT INFORMATION
  Report Type: 
  Country: None (occurrence: None)
  Receive Date: 20100918
  Receipt Date: 20090123
  Transmission Date: 20110219
  Serious: No
  Sender: FDA-Public Use
  Company Number: US-WYE-H07916109

PATIENT
  Sex: Female
  Weight: 81.72 kg

DRUGS (3)
  1. EFFEXOR XR [Suspect]
     Indication: ANXIETY
     Route: 048
     Dates: start: 20090117, end: 20090119
  2. BENICAR [Concomitant]
  3. METOPROLOL [Concomitant]

REACTIONS (2)
  - DIZZINESS [None]
  - UNEVALUABLE EVENT [None]
